FAERS Safety Report 9230680 (Version 7)
Quarter: 2014Q3

REPORT INFORMATION
  Report Type: Spontaneous
  Country: US (occurrence: US)
  Receive Date: 20130415
  Receipt Date: 20140904
  Transmission Date: 20150326
  Serious: Yes (Hospitalization, Disabling)
  Sender: FDA-Public Use
  Company Number: US-009507513-1304USA005200

PATIENT
  Sex: Male
  Weight: 66.98 kg

DRUGS (1)
  1. PROPECIA [Suspect]
     Active Substance: FINASTERIDE
     Indication: ALOPECIA
     Dosage: 1 MG, QD
     Route: 048
     Dates: start: 2006, end: 20071217

REACTIONS (29)
  - Sexual dysfunction [Not Recovered/Not Resolved]
  - Suicidal ideation [Unknown]
  - Dyspnoea [Unknown]
  - Skin hyperpigmentation [Unknown]
  - Hydrocele [Unknown]
  - Anxiety [Unknown]
  - Papilloma viral infection [Unknown]
  - Acne [Unknown]
  - Amnesia [Unknown]
  - Blood testosterone decreased [Unknown]
  - Hypogonadism [Unknown]
  - Erectile dysfunction [Unknown]
  - Testicular pain [Unknown]
  - Gynaecomastia [Unknown]
  - Scrotal swelling [Unknown]
  - Chest pain [Unknown]
  - Cryotherapy [Unknown]
  - Fungal skin infection [Unknown]
  - Gastrooesophageal reflux disease [Unknown]
  - Vision blurred [Unknown]
  - Laceration [Unknown]
  - Genital lesion [Unknown]
  - Libido decreased [Unknown]
  - Anxiety [Not Recovered/Not Resolved]
  - Hydrocele operation [Unknown]
  - Depression [Unknown]
  - Anger [Unknown]
  - Anorectal discomfort [Unknown]
  - Groin pain [Unknown]

NARRATIVE: CASE EVENT DATE: 200611
